FAERS Safety Report 8090818-9 (Version None)
Quarter: 2012Q1

REPORT INFORMATION
  Report Type: 
  Country: None (occurrence: None)
  Receive Date: 20120131
  Receipt Date: 20120126
  Transmission Date: 20120608
  Serious: Yes (Other)
  Sender: FDA-Public Use
  Company Number: US-TEVA-319417USA

PATIENT
  Sex: Female

DRUGS (2)
  1. SIMVASTATIN [Suspect]
     Indication: LIPOPROTEIN (A) ABNORMAL
     Dosage: 40 MILLIGRAM;
     Dates: start: 20111101
  2. SIMVASTATIN [Suspect]
     Indication: BLOOD TRIGLYCERIDES ABNORMAL

REACTIONS (4)
  - NERVOUSNESS [None]
  - PALPITATIONS [None]
  - DYSPNOEA [None]
  - ANXIETY [None]
